FAERS Safety Report 25968140 (Version 1)
Quarter: 2025Q4

REPORT INFORMATION
  Report Type: Spontaneous
  Country: EU (occurrence: EU)
  Receive Date: 20251028
  Receipt Date: 20251028
  Transmission Date: 20260118
  Serious: Yes (Hospitalization, Other)
  Sender: MSN LABORATORIES PRIVATE LIMITED
  Company Number: None

PATIENT

DRUGS (6)
  1. PREGABALIN [Suspect]
     Active Substance: PREGABALIN
     Indication: Sciatica
     Dosage: 75 MILLIGRAM DAILY
     Route: 048
  2. PREGABALIN [Suspect]
     Active Substance: PREGABALIN
     Indication: Sciatica
  3. PREGABALIN [Suspect]
     Active Substance: PREGABALIN
     Indication: Pain
  4. TAPENTADOL [Concomitant]
     Active Substance: TAPENTADOL
     Dosage: 50 MG, 2X PER DAY/50 MG CADA 12 HORAS/50 MG, BID, IN ASCENDING DOSES EVERY 5 DAYS
     Route: 048
  5. TAPENTADOL [Concomitant]
     Active Substance: TAPENTADOL
     Indication: Pain
  6. TAPENTADOL [Concomitant]
     Active Substance: TAPENTADOL

REACTIONS (8)
  - Rales [Recovered/Resolved]
  - Condition aggravated [Recovered/Resolved]
  - Breath sounds abnormal [Recovered/Resolved]
  - Cardiac failure [Recovered/Resolved]
  - Crepitations [Recovered/Resolved]
  - Malaise [Recovered/Resolved]
  - Dyspnoea [Recovered/Resolved]
  - Oedema peripheral [Recovered/Resolved]
